FAERS Safety Report 7108052-5 (Version None)
Quarter: 2010Q4

REPORT INFORMATION
  Report Type: 
  Country: None (occurrence: None)
  Receive Date: 20101117
  Receipt Date: 20101105
  Transmission Date: 20110411
  Serious: Yes (Other)
  Sender: FDA-Public Use
  Company Number: FR-JNJFOC-20101006667

PATIENT
  Sex: Male

DRUGS (6)
  1. TOPALGIC [Suspect]
     Indication: BACK PAIN
     Route: 048
  2. TOPALGIC [Suspect]
     Route: 048
  3. TOPALGIC [Suspect]
     Route: 048
  4. VALSARTAN  AND HYDROCHLOROTHIAZIDE [Concomitant]
  5. NEXIUM [Concomitant]
  6. DIACEREIN [Concomitant]

REACTIONS (3)
  - DEPRESSION [None]
  - MORBID THOUGHTS [None]
  - WITHDRAWAL SYNDROME [None]
